FAERS Safety Report 9441236 (Version 1)
Quarter: 2013Q3

REPORT INFORMATION
  Report Type: Spontaneous
  Country: DE (occurrence: DE)
  Receive Date: 20130805
  Receipt Date: 20130805
  Transmission Date: 20140515
  Serious: Yes (Hospitalization)
  Sender: FDA-Public Use
  Company Number: DE-ROCHE-1236034

PATIENT
  Age: 81 Year
  Sex: Female
  Weight: 74 kg

DRUGS (17)
  1. MABTHERA [Suspect]
     Indication: DIFFUSE LARGE B-CELL LYMPHOMA
     Route: 042
     Dates: start: 20121010, end: 20130103
  2. CO-TRIMOXAZOLE [Suspect]
     Indication: DIFFUSE LARGE B-CELL LYMPHOMA
     Route: 048
     Dates: start: 20121102, end: 20130220
  3. PARACETAMOL [Concomitant]
     Indication: PREMEDICATION
     Route: 048
     Dates: start: 20121210, end: 20130103
  4. CLEMASTIN [Concomitant]
     Indication: PREMEDICATION
     Route: 042
     Dates: start: 20121010, end: 20121010
  5. SOLU-DECORTIN H [Concomitant]
     Route: 042
     Dates: start: 20121010, end: 20121010
  6. PRADAXA [Concomitant]
     Route: 048
  7. ASS [Concomitant]
     Route: 065
  8. CANDESARTAN [Concomitant]
     Route: 065
  9. METOPROLOL SUCCINATE [Concomitant]
     Route: 065
  10. LEVOTHYROXINE [Concomitant]
     Route: 065
  11. GLIBENCLAMIDE [Concomitant]
     Route: 065
  12. INSULIN [Concomitant]
     Route: 065
  13. FENOTEROL/IPRATROPIUM BROMIDE [Concomitant]
     Route: 065
  14. ALLOPURINOL [Concomitant]
     Route: 065
  15. TORASEMIDE [Concomitant]
     Route: 065
  16. XIPAMID [Concomitant]
     Route: 065
  17. PANTOPRAZOL [Concomitant]
     Route: 065

REACTIONS (4)
  - Acute myocardial infarction [Recovered/Resolved]
  - Ventricular extrasystoles [Recovered/Resolved]
  - Tachyarrhythmia [Recovered/Resolved]
  - Pruritus [Recovered/Resolved]
